FAERS Safety Report 8550905 (Version 3)
Quarter: 2012Q4

REPORT INFORMATION
  Report Type: 
  Country: CA (occurrence: CA)
  Receive Date: 20120508
  Receipt Date: 20121111
  Transmission Date: 20130627
  Serious: Yes (Hospitalization)
  Sender: FDA-Public Use
  Company Number: PHHY2011CA111617

PATIENT
  Sex: Female

DRUGS (2)
  1. SANDOSTATIN LAR [Suspect]
     Indication: ACROMEGALY
     Dosage: 20 mg, QMO
     Route: 030
     Dates: start: 20111128
  2. SANDOSTATIN LAR [Suspect]
     Dosage: 20 mg, every 4 weeks
     Route: 030

REACTIONS (9)
  - Blood growth hormone releasing hormone increased [Recovering/Resolving]
  - Mental disorder [Unknown]
  - Depression [Recovering/Resolving]
  - Joint crepitation [Recovering/Resolving]
  - Pain in extremity [Unknown]
  - Anxiety [Unknown]
  - Injection site swelling [Unknown]
  - Headache [Unknown]
  - Insulin-like growth factor increased [Recovering/Resolving]
